FAERS Safety Report 7272984-8 (Version None)
Quarter: 2011Q1

REPORT INFORMATION
  Report Type: 
  Country: None (occurrence: None)
  Receive Date: 20110203
  Receipt Date: 20110126
  Transmission Date: 20110831
  Serious: Yes (Hospitalization)
  Sender: FDA-Public Use
  Company Number: A0909568A

PATIENT
  Age: 72 Year
  Sex: Female

DRUGS (2)
  1. RED BLOOD CELLS [Concomitant]
  2. ELTROMBOPAG [Suspect]
     Indication: THROMBOCYTOPENIA
     Dosage: 100MG PER DAY
     Route: 048

REACTIONS (1)
  - FEBRILE NEUTROPENIA [None]
